FAERS Safety Report 18559102 (Version 1)
Quarter: 2020Q4

REPORT INFORMATION
  Report Type: Spontaneous
  Country: IN (occurrence: IN)
  Receive Date: 20201130
  Receipt Date: 20201130
  Transmission Date: 20210114
  Serious: Yes (Other)
  Sender: FDA-Public Use
  Company Number: IN-CADILA HEALTHCARE LIMITED-IN-ZYDUS-058430

PATIENT

DRUGS (3)
  1. METHYLPREDNISOLONE. [Concomitant]
     Active Substance: METHYLPREDNISOLONE
     Indication: PULMONARY HAEMORRHAGE
     Dosage: 30 MILLIGRAM/KILOGRAM, QD, 5 PULSES
  2. AZATHIOPRINE. [Suspect]
     Active Substance: AZATHIOPRINE
     Indication: PULMONARY HAEMORRHAGE
     Dosage: 2 MILLIGRAM/KILOGRAM, QD
     Route: 048
  3. CYCLOPHOSPHAMIDE. [Concomitant]
     Active Substance: CYCLOPHOSPHAMIDE
     Indication: PULMONARY HAEMORRHAGE
     Dosage: 500 MILLIGRAM/SQ. METER, 6 DOSES
     Route: 042

REACTIONS (2)
  - Pancytopenia [Recovering/Resolving]
  - Nail pigmentation [Recovered/Resolved]
